FAERS Safety Report 16710243 (Version 1)
Quarter: 2019Q3

REPORT INFORMATION
  Report Type: Other
  Country: ES (occurrence: ES)
  Receive Date: 20190816
  Receipt Date: 20190816
  Transmission Date: 20191004
  Serious: Yes (Other)
  Sender: FDA-Public Use
  Company Number: ES-APOTEX-2019AP020057

PATIENT
  Age: 51 Year
  Sex: Female

DRUGS (3)
  1. SEPTRIN [Suspect]
     Active Substance: SULFAMETHOXAZOLE\TRIMETHOPRIM
     Indication: MENINGITIS
     Dosage: 1 DF, BID
     Route: 048
     Dates: start: 20190309, end: 20190312
  2. MEROPENEM. [Suspect]
     Active Substance: MEROPENEM
     Indication: MENINGITIS
     Dosage: 1 G, TID
     Route: 042
     Dates: start: 20190311, end: 20190319
  3. LEVETIRACETAM. [Suspect]
     Active Substance: LEVETIRACETAM
     Indication: BRAIN OPERATION
     Dosage: UNK
     Route: 065
     Dates: start: 20190309, end: 20190319

REACTIONS (1)
  - Mixed liver injury [Recovered/Resolved]

NARRATIVE: CASE EVENT DATE: 20190313
